FAERS Safety Report 6035715-5 (Version None)
Quarter: 2009Q1

REPORT INFORMATION
  Report Type: 
  Country: None (occurrence: None)
  Receive Date: 20090112
  Receipt Date: 20090112
  Transmission Date: 20090719
  Serious: Yes (Other)
  Sender: FDA-Public Use
  Company Number: None

PATIENT
  Sex: Female
  Weight: 70.7611 kg

DRUGS (2)
  1. TRICOR [Suspect]
     Indication: BLOOD CHOLESTEROL
     Dosage: ONE A DAY
  2. TRICOR [Suspect]
     Indication: BLOOD TRIGLYCERIDES
     Dosage: ONE A DAY

REACTIONS (1)
  - HEADACHE [None]
